FAERS Safety Report 23264352 (Version 1)
Quarter: 2023Q4

REPORT INFORMATION
  Report Type: Report from Study
  Country: US (occurrence: US)
  Receive Date: 20231205
  Receipt Date: 20231205
  Transmission Date: 20240109
  Serious: Yes (Hospitalization, Other)
  Sender: FDA-Public Use
  Company Number: US-Eisai Medical Research-EC-2020-071281

PATIENT
  Age: 69 Year
  Sex: Female
  Weight: 86.1 kg

DRUGS (23)
  1. LENVIMA [Suspect]
     Active Substance: LENVATINIB
     Indication: Thyroid cancer
     Route: 048
     Dates: start: 20200221, end: 20200602
  2. LENVIMA [Suspect]
     Active Substance: LENVATINIB
     Indication: Metastasis
     Route: 048
     Dates: start: 20211018, end: 2023
  3. ASPIRIN [Concomitant]
     Active Substance: ASPIRIN
  4. LOVASTATIN [Concomitant]
     Active Substance: LOVASTATIN
  5. METFORMIN [Concomitant]
     Active Substance: METFORMIN HYDROCHLORIDE
  6. FAMOTIDINE [Concomitant]
     Active Substance: FAMOTIDINE
  7. ATENOLOL [Concomitant]
     Active Substance: ATENOLOL
  8. LEVOTHYROXINE [Concomitant]
     Active Substance: LEVOTHYROXINE
  9. LORATADINE [Concomitant]
     Active Substance: LORATADINE
  10. AMLODIPINE [Concomitant]
     Active Substance: AMLODIPINE BESYLATE
  11. LOSARTAN [Concomitant]
     Active Substance: LOSARTAN
  12. SERTRALINE [Concomitant]
     Active Substance: SERTRALINE HYDROCHLORIDE
  13. HYDROXYZINE [Concomitant]
     Active Substance: HYDROXYZINE HYDROCHLORIDE
  14. SUCRALFATE [Concomitant]
     Active Substance: SUCRALFATE
  15. METOCLOPRAMIDE [Concomitant]
     Active Substance: METOCLOPRAMIDE
  16. CIPROFLOXACIN [Concomitant]
     Active Substance: CIPROFLOXACIN
  17. CIPRO HC [Concomitant]
     Active Substance: CIPROFLOXACIN HYDROCHLORIDE\HYDROCORTISONE
     Dosage: 0.2-1%
  18. LACTOBACILLUS PROBIOTIC [Concomitant]
  19. MONTELUKAST SODIUM [Concomitant]
     Active Substance: MONTELUKAST SODIUM
  20. BENZONATATE [Concomitant]
     Active Substance: BENZONATATE
  21. CEFUROXIME [Concomitant]
     Active Substance: CEFUROXIME
  22. PREDNISOLONE [Concomitant]
     Active Substance: PREDNISOLONE
  23. MOXIFLOXACIN [Concomitant]
     Active Substance: MOXIFLOXACIN

REACTIONS (25)
  - Gastritis [Recovering/Resolving]
  - Chest pain [Unknown]
  - Malignant neoplasm progression [Unknown]
  - Cataract [Unknown]
  - Dysphonia [Unknown]
  - Rhinorrhoea [Unknown]
  - Hypertension [Not Recovered/Not Resolved]
  - Pain [Unknown]
  - Oropharyngeal pain [Not Recovered/Not Resolved]
  - Stomatitis [Not Recovered/Not Resolved]
  - Headache [Unknown]
  - Asthenopia [Unknown]
  - Constipation [Not Recovered/Not Resolved]
  - Diarrhoea [Not Recovered/Not Resolved]
  - Feeling cold [Not Recovered/Not Resolved]
  - Nausea [Not Recovered/Not Resolved]
  - Weight decreased [Recovering/Resolving]
  - Vomiting [Recovering/Resolving]
  - Thyroid hormones decreased [Recovering/Resolving]
  - Asthenia [Recovering/Resolving]
  - Back pain [Recovering/Resolving]
  - Bladder pain [Unknown]
  - Vulvovaginal pruritus [Recovering/Resolving]
  - Seasonal allergy [Not Recovered/Not Resolved]
  - Cough [Not Recovered/Not Resolved]

NARRATIVE: CASE EVENT DATE: 20200101
